FAERS Safety Report 7860267-4 (Version None)
Quarter: 2011Q4

REPORT INFORMATION
  Report Type: 
  Country: None (occurrence: None)
  Receive Date: 20111027
  Receipt Date: 20111014
  Transmission Date: 20120403
  Serious: Yes (Death, Hospitalization)
  Sender: FDA-Public Use
  Company Number: DE-ROCHE-557214

PATIENT
  Sex: Male
  Weight: 64 kg

DRUGS (7)
  1. DEXAMETHASONE [Concomitant]
     Dates: start: 20080402, end: 20080402
  2. ENALAPRIL MALEATE [Concomitant]
     Dosage: REPROTED AS ^EUAPRIE^
  3. IRINOTECAN HCL [Suspect]
     Indication: COLORECTAL CANCER METASTATIC
     Dosage: FREQUENCY:1/8/15/22/29/36; PERMANENTLY DISCONTINUED; LAST DOSE PRIOR TO SAE: 2 APR 08
     Route: 042
     Dates: start: 20070717, end: 20080407
  4. FLUOROURACIL [Suspect]
     Indication: COLORECTAL CANCER METASTATIC
     Dosage: FREQUENCY: 1/8/15/22/29/36; PERMANENTLY DISCONTINUED; LAST DOSE PRIOR TO SAE: 2 APR 08
     Route: 042
     Dates: start: 20070717, end: 20080407
  5. AVASTIN [Suspect]
     Indication: COLORECTAL CANCER METASTATIC
     Dosage: FREQUECY:15/29. DOSAGE FORM: INFUSION; PERMANENTLY DISCONTINUED; LAST DOSE PRIOR TO SAE: 26 MAR 08
     Route: 042
     Dates: start: 20070725, end: 20080407
  6. 5-HT3 ANTAGONISTS (UNK INGREDIENTS) [Concomitant]
     Dosage: DRUG REPORTED AS 5-HT3 DAILY DOSE=1 UNIT
     Dates: start: 20080402, end: 20080402
  7. LEUCOVORIN CALCIUM [Suspect]
     Indication: COLORECTAL CANCER METASTATIC
     Dosage: FREQUENCY: 1/8/15/22/29/36; DATE OF LAST DOSE PRIOR TO SAE: 2 APR 08
     Route: 042
     Dates: start: 20070717, end: 20080407

REACTIONS (2)
  - CEREBROVASCULAR ACCIDENT [None]
  - INFECTIOUS PERITONITIS [None]
